FAERS Safety Report 6042090-9 (Version None)
Quarter: 2009Q1

REPORT INFORMATION
  Report Type: 
  Country: None (occurrence: None)
  Receive Date: 20090116
  Receipt Date: 20090115
  Transmission Date: 20090719
  Serious: Yes (Life-Threatening, Hospitalization, Congenital Anomaly)
  Sender: FDA-Public Use
  Company Number: CA-ASTRAZENECA-2009UW01269

PATIENT
  Age: 66 Year
  Sex: Female
  Weight: 59 kg

DRUGS (7)
  1. CRESTOR [Suspect]
     Route: 048
  2. SEROQUEL [Concomitant]
     Route: 048
  3. APO-CLONAZEPAM [Concomitant]
     Route: 048
  4. AVALIDE [Concomitant]
     Route: 048
  5. NCVO VENLAFAXINE XR [Concomitant]
     Route: 048
  6. PLAVIX [Concomitant]
     Route: 048
  7. SYNTHROID [Concomitant]
     Route: 048

REACTIONS (10)
  - ASTHENIA [None]
  - BLOOD CREATINE PHOSPHOKINASE INCREASED [None]
  - DISCOMFORT [None]
  - FATIGUE [None]
  - LIVER FUNCTION TEST ABNORMAL [None]
  - MALAISE [None]
  - PAIN [None]
  - RHABDOMYOLYSIS [None]
  - SOMNOLENCE [None]
  - UNRESPONSIVE TO STIMULI [None]
